FAERS Safety Report 6334991-9 (Version None)
Quarter: 2009Q3

REPORT INFORMATION
  Report Type: 
  Country: None (occurrence: None)
  Receive Date: 20090831
  Receipt Date: 20090820
  Transmission Date: 20100115
  Serious: Yes (Other)
  Sender: FDA-Public Use
  Company Number: US-PFIZER INC-2009233731

PATIENT
  Sex: Female

DRUGS (8)
  1. NARDIL [Suspect]
     Indication: DEPRESSION
     Dosage: 15 MG, 2X/DAY
     Route: 048
  2. NARDIL [Suspect]
     Indication: PANIC ATTACK
     Dosage: 30 MG, 2X/DAY
  3. NARDIL [Suspect]
     Dosage: 90 MG, 2X/DAY
     Dates: end: 20090621
  4. CLONAZEPAM [Concomitant]
  5. AMANTADINE HCL [Concomitant]
  6. PULMICORT-100 [Concomitant]
  7. ALBUTEROL [Concomitant]
  8. TRAZODONE [Suspect]

REACTIONS (10)
  - DECREASED INTEREST [None]
  - DRUG INEFFECTIVE [None]
  - FATIGUE [None]
  - HEADACHE [None]
  - HYPERSOMNIA [None]
  - INSOMNIA [None]
  - LETHARGY [None]
  - PRURITUS [None]
  - WEIGHT INCREASED [None]
  - WITHDRAWAL SYNDROME [None]
